FAERS Safety Report 22726317 (Version 2)
Quarter: 2024Q4

REPORT INFORMATION
  Report Type: Report from Study
  Country: BR (occurrence: BR)
  Receive Date: 20230720
  Receipt Date: 20241231
  Transmission Date: 20250115
  Serious: No
  Sender: CELLTRION
  Company Number: BR-CELLTRION INC.-2023BR014227

PATIENT

DRUGS (4)
  1. INFLIXIMAB-DYYB [Suspect]
     Active Substance: INFLIXIMAB-DYYB
     Indication: Crohn^s disease
     Dosage: 3 AMPOULES EVERY MONTH
     Route: 042
     Dates: start: 20221205
  2. ZANTAC [Concomitant]
     Active Substance: RANITIDINE HYDROCHLORIDE
     Indication: Crohn^s disease
     Dosage: 2.5 TABLETS A DAY
     Route: 048
     Dates: start: 202206, end: 202305
  3. CORAMENT [Concomitant]
     Indication: Crohn^s disease
     Dosage: 1 TABLET A DAY
     Route: 048
     Dates: start: 20230622, end: 20230724
  4. VITAMIN B12 [Concomitant]
     Active Substance: CYANOCOBALAMIN
     Indication: Crohn^s disease
     Dosage: 2 AMPOULES EVERY 15 DAYS
     Route: 058

REACTIONS (8)
  - Pharyngeal swelling [Recovering/Resolving]
  - Chest pain [Recovering/Resolving]
  - Cough [Recovering/Resolving]
  - Pyrexia [Recovering/Resolving]
  - Pain [Recovering/Resolving]
  - Therapeutic response shortened [Recovering/Resolving]
  - Intentional dose omission [Recovering/Resolving]
  - Intentional product use issue [Unknown]

NARRATIVE: CASE EVENT DATE: 20230706
